FAERS Safety Report 6064835-4 (Version None)
Quarter: 2009Q1

REPORT INFORMATION
  Report Type: 
  Country: None (occurrence: None)
  Receive Date: 20090204
  Receipt Date: 20090130
  Transmission Date: 20090719
  Serious: Yes (Life-Threatening)
  Sender: FDA-Public Use
  Company Number: JP-ASTRAZENECA-2009AP00941

PATIENT
  Age: 63 Year
  Sex: Male

DRUGS (4)
  1. MEROPEN [Suspect]
     Indication: SEPSIS
     Dosage: TREATMENT FOR CHOLECYSTITIS (RECOVERED)
     Route: 041
     Dates: start: 20081227
  2. MEROPEN [Suspect]
     Route: 041
     Dates: start: 20090122, end: 20090122
  3. TAZOBACTAM [Concomitant]
     Route: 042
     Dates: start: 20090113, end: 20090121
  4. RELENZA [Concomitant]
     Indication: INFLUENZA
     Route: 055
     Dates: start: 20090120, end: 20090122

REACTIONS (1)
  - ANAPHYLACTIC REACTION [None]
